FAERS Safety Report 19243425 (Version 1)
Quarter: 2021Q2

REPORT INFORMATION
  Report Type: Spontaneous
  Country: NL (occurrence: FR)
  Receive Date: 20210511
  Receipt Date: 20210511
  Transmission Date: 20210717
  Serious: Yes (Hospitalization)
  Sender: FDA-Public Use
  Company Number: FR-FRESENIUS KABI-FK202104527

PATIENT
  Age: 64 Year
  Sex: Female

DRUGS (1)
  1. PROPOFOL (MANUFACTURER UNKNOWN) [Suspect]
     Active Substance: PROPOFOL
     Indication: ANAESTHESIA
     Dosage: UNK
     Route: 042
     Dates: start: 20210403, end: 20210406

REACTIONS (5)
  - Blood creatine phosphokinase increased [Recovering/Resolving]
  - Propofol infusion syndrome [Recovering/Resolving]
  - Chromaturia [Recovering/Resolving]
  - Metabolic acidosis [Recovered/Resolved]
  - Hyperlactacidaemia [Not Recovered/Not Resolved]

NARRATIVE: CASE EVENT DATE: 20210406
